FAERS Safety Report 19658662 (Version 2)
Quarter: 2022Q1

REPORT INFORMATION
  Report Type: Spontaneous
  Country: US (occurrence: US)
  Receive Date: 20210805
  Receipt Date: 20220202
  Transmission Date: 20220423
  Serious: No
  Sender: FDA-Public Use
  Company Number: US-SA-SAC20210804000027

PATIENT
  Age: 14 Year
  Sex: Male

DRUGS (4)
  1. ALDURAZYME [Suspect]
     Active Substance: LARONIDASE
     Indication: Mucopolysaccharidosis I
     Dosage: 34.8 MG, QW
     Route: 042
     Dates: start: 2012
  2. ALDURAZYME [Suspect]
     Active Substance: LARONIDASE
     Dosage: 34.8 MG, QW
     Route: 042
     Dates: start: 20210729, end: 202201
  3. ALDURAZYME [Suspect]
     Active Substance: LARONIDASE
     Dosage: 34.8 MG, QW
     Route: 042
     Dates: start: 20220118
  4. BENADRYL [Concomitant]
     Active Substance: DIPHENHYDRAMINE HYDROCHLORIDE
     Indication: Premedication

REACTIONS (3)
  - Pyrexia [Recovered/Resolved]
  - Blood pressure increased [Recovered/Resolved]
  - Product dose omission issue [Unknown]

NARRATIVE: CASE EVENT DATE: 20220111
